FAERS Safety Report 6665092-8 (Version None)
Quarter: 2010Q2

REPORT INFORMATION
  Report Type: 
  Country: None (occurrence: None)
  Receive Date: 20100402
  Receipt Date: 20100323
  Transmission Date: 20101027
  Serious: No
  Sender: FDA-Public Use
  Company Number: 2009BI020117

PATIENT
  Sex: Female

DRUGS (1)
  1. TYSABRI [Suspect]
     Indication: MULTIPLE SCLEROSIS
     Route: 042
     Dates: start: 20071107

REACTIONS (4)
  - ADVERSE DRUG REACTION [None]
  - ADVERSE EVENT [None]
  - FATIGUE [None]
  - MULTIPLE SCLEROSIS RELAPSE [None]
